FAERS Safety Report 9016942 (Version 2)
Quarter: 2013Q1

REPORT INFORMATION
  Report Type: Spontaneous
  Country: AR (occurrence: AR)
  Receive Date: 20130117
  Receipt Date: 20130319
  Transmission Date: 20140127
  Serious: Yes (Death, Hospitalization, Other)
  Sender: FDA-Public Use
  Company Number: PHHY2013AR004033

PATIENT
  Sex: Female

DRUGS (1)
  1. EXELON PATCH [Suspect]
     Indication: DEMENTIA ALZHEIMER^S TYPE
     Dosage: 9.5 MG (PATCH 10 CM2), DAILY
     Route: 062

REACTIONS (6)
  - Cardio-respiratory arrest [Fatal]
  - General physical health deterioration [Unknown]
  - Presyncope [Recovering/Resolving]
  - Syncope [Unknown]
  - Urinary tract infection [Recovering/Resolving]
  - Blood pressure decreased [Unknown]
